FAERS Safety Report 8214018-4 (Version None)
Quarter: 2012Q1

REPORT INFORMATION
  Report Type: 
  Country: None (occurrence: None)
  Receive Date: 20120316
  Receipt Date: 20120313
  Transmission Date: 20120608
  Serious: No
  Sender: FDA-Public Use
  Company Number: US-PFIZER INC-2012066569

PATIENT
  Sex: Female
  Weight: 54.422 kg

DRUGS (7)
  1. TYLENOL [Suspect]
     Indication: MUSCLE SPASMS
     Dosage: UNK
  2. VITAMIN B-12 [Concomitant]
     Dosage: UNK
  3. MULTI-VITAMINS [Concomitant]
     Dosage: UNK
  4. FISH OIL [Concomitant]
     Dosage: UNK
  5. PROZAC [Concomitant]
     Indication: DEPRESSION
     Dosage: 5 MG, DAILY
  6. SKELAXIN [Concomitant]
     Indication: MUSCLE RELAXANT THERAPY
     Dosage: UNK
  7. IBUPROFEN (ADVIL) [Suspect]
     Indication: MUSCLE SPASMS
     Dosage: UNK

REACTIONS (4)
  - RASH [None]
  - MALAISE [None]
  - DIZZINESS [None]
  - ABDOMINAL DISCOMFORT [None]
